FAERS Safety Report 9773013 (Version 1)
Quarter: 2013Q4

REPORT INFORMATION
  Report Type: Spontaneous
  Country: GB (occurrence: None)
  Receive Date: 20131217
  Receipt Date: 20131217
  Transmission Date: 20140711
  Serious: Yes (Other)
  Sender: FDA-Public Use
  Company Number: GB-DEXPHARM-20131144

PATIENT
  Age: 65 Year
  Sex: Female

DRUGS (2)
  1. OMEPRAZOLE [Suspect]
     Indication: REFLUX LARYNGITIS
     Dosage: DOSE: 40 MG MILLIGRAM(S) SEP. DOSAGES/INTERVAL: 2 IN 1 DAYS CUMULATIVE DOSE: 80 MG MILLIGRAM(S)
     Route: 048
     Dates: start: 20130617, end: 20130704
  2. LANSOPRAZOLE [Concomitant]

REACTIONS (8)
  - Drug ineffective [None]
  - Ear disorder [None]
  - Dyspepsia [None]
  - Eye inflammation [None]
  - Oesophagitis [None]
  - Gastritis [None]
  - Gastric pH decreased [None]
  - Tonsillar hypertrophy [None]
